FAERS Safety Report 4391823-6 (Version None)
Quarter: 2004Q3

REPORT INFORMATION
  Report Type: 
  Country: None (occurrence: None)
  Receive Date: 20040701
  Receipt Date: 20040610
  Transmission Date: 20050211
  Serious: Yes (Other)
  Sender: FDA-Public Use
  Company Number: USA040669923

PATIENT
  Age: 67 Year
  Sex: Female

DRUGS (3)
  1. FORTEO [Suspect]
     Indication: OSTEOPOROSIS
     Dates: start: 20040525
  2. EVISTA [Suspect]
     Indication: OSTEOPOROSIS
     Dosage: 60 MG
     Dates: end: 20040501
  3. FOSAMAX [Concomitant]

REACTIONS (3)
  - BLOOD PRESSURE FLUCTUATION [None]
  - BONE SCAN ABNORMAL [None]
  - HYPERTENSION [None]
